FAERS Safety Report 25147062 (Version 1)
Quarter: 2025Q2

REPORT INFORMATION
  Report Type: Spontaneous
  Country: US (occurrence: US)
  Receive Date: 20250401
  Receipt Date: 20250401
  Transmission Date: 20250716
  Serious: Yes (Other)
  Sender: MYLAN
  Company Number: US-MYLANLABS-2025M1027710

PATIENT
  Sex: Male

DRUGS (10)
  1. VIAGRA [Suspect]
     Active Substance: SILDENAFIL CITRATE
     Indication: Hypertension
  2. TYVASO [Suspect]
     Active Substance: TREPROSTINIL
     Indication: Pulmonary arterial hypertension
     Dosage: 30 MICROGRAM, QID (FOUR TIMES A DAY) 5 BREATHS
     Dates: start: 202411, end: 202411
  3. TYVASO [Suspect]
     Active Substance: TREPROSTINIL
  4. TYVASO [Suspect]
     Active Substance: TREPROSTINIL
     Dosage: 18 MICROGRAM, QID (FOUR TIMES A DAY)
     Dates: start: 20240312
  5. TYVASO [Suspect]
     Active Substance: TREPROSTINIL
     Dosage: 24 MICROGRAM, QID (FOUR TIMES A DAY) 4 BREATHS
     Dates: end: 20250210
  6. TYVASO [Suspect]
     Active Substance: TREPROSTINIL
     Dosage: 30 MICROGRAM, QID (FOUR TIMES A DAY) 5  BREATHS
     Dates: start: 20250210, end: 20250214
  7. TYVASO [Suspect]
     Active Substance: TREPROSTINIL
  8. TYVASO [Suspect]
     Active Substance: TREPROSTINIL
     Dosage: 24 MICROGRAM, QID (FOUR TIMES A DAY)
     Dates: start: 202502
  9. OXYGEN [Concomitant]
     Active Substance: OXYGEN
  10. OXYGEN [Concomitant]
     Active Substance: OXYGEN

REACTIONS (11)
  - Oxygen saturation decreased [Unknown]
  - Loss of consciousness [Recovered/Resolved]
  - Dizziness [Unknown]
  - Dyspnoea [Unknown]
  - Arthralgia [Not Recovered/Not Resolved]
  - Hypotension [Unknown]
  - Fall [Recovered/Resolved with Sequelae]
  - Head injury [Unknown]
  - General physical health deterioration [Unknown]
  - Dyspnoea exertional [Unknown]
  - Cough [Unknown]

NARRATIVE: CASE EVENT DATE: 20240101
